FAERS Safety Report 6494143-9 (Version None)
Quarter: 2009Q4

REPORT INFORMATION
  Report Type: 
  Country: None (occurrence: None)
  Receive Date: 20091214
  Receipt Date: 20090204
  Transmission Date: 20100525
  Serious: Yes (Death)
  Sender: FDA-Public Use
  Company Number: US-BRISTOL-MYERS SQUIBB COMPANY-14465595

PATIENT
  Age: 72 Year
  Sex: Female

DRUGS (7)
  1. ABILIFY [Suspect]
     Indication: BIPOLAR DISORDER
     Route: 048
     Dates: start: 20081114
  2. ABILIFY [Suspect]
     Indication: AFFECTIVE DISORDER
     Route: 048
     Dates: start: 20081114
  3. WELLBUTRIN SR [Suspect]
     Indication: DEPRESSION
     Dosage: 150MG (2) QAM FOR DEPRESSION TAPER 150MG (1) QAM FOR DEPRESSION. ALSO RECD ON 7/01: 12/01-6/04
     Dates: start: 20061204
  4. MIRTAZAPINE [Suspect]
     Indication: DEPRESSION
  5. MIRTAZAPINE [Suspect]
     Indication: SLEEP DISORDER
  6. VALPROIC ACID [Suspect]
     Indication: AFFECTIVE DISORDER
  7. THORAZINE [Suspect]
     Indication: SLEEP DISORDER

REACTIONS (1)
  - COMPLETED SUICIDE [None]
